FAERS Safety Report 12603248 (Version 2)
Quarter: 2016Q3

REPORT INFORMATION
  Report Type: Spontaneous
  Country: US (occurrence: US)
  Receive Date: 20160728
  Receipt Date: 20160810
  Transmission Date: 20161109
  Serious: Yes (Life-Threatening, Hospitalization)
  Sender: FDA-Public Use
  Company Number: US-ACTELION-A-NJ2016-139849

PATIENT
  Age: 67 Year
  Sex: Male

DRUGS (12)
  1. COUMADIN [Concomitant]
     Active Substance: WARFARIN SODIUM
  2. SOTALOL HCL [Concomitant]
     Active Substance: SOTALOL
  3. TRACLEER [Suspect]
     Active Substance: BOSENTAN
     Indication: PULMONARY ARTERIAL HYPERTENSION
     Dosage: 125 MG, BID
     Route: 048
     Dates: start: 20120831
  4. RIOCIGUAT [Suspect]
     Active Substance: RIOCIGUAT
     Indication: KIDNEY INFECTION
     Dosage: 2.5 MG, TID
     Route: 065
  5. SYNTHROID [Concomitant]
     Active Substance: LEVOTHYROXINE SODIUM
  6. DIGOXIN. [Concomitant]
     Active Substance: DIGOXIN
  7. TRACLEER [Suspect]
     Active Substance: BOSENTAN
     Dosage: 125 MG, TID
     Route: 048
  8. TORSEMIDE. [Concomitant]
     Active Substance: TORSEMIDE
  9. SPIRONOLACTONE. [Concomitant]
     Active Substance: SPIRONOLACTONE
  10. SAW PALMETTO [Concomitant]
     Active Substance: SAW PALMETTO
  11. DILTIAZEM. [Concomitant]
     Active Substance: DILTIAZEM
  12. METOPROLOL EG [Concomitant]

REACTIONS (6)
  - Septic shock [Recovered/Resolved]
  - Acute kidney injury [Recovered/Resolved]
  - Hypotension [Recovered/Resolved]
  - Oliguria [Recovered/Resolved]
  - Streptococcal sepsis [Recovered/Resolved]
  - Asthenia [Recovered/Resolved]

NARRATIVE: CASE EVENT DATE: 20160715
